FAERS Safety Report 10192824 (Version 1)
Quarter: 2014Q2

REPORT INFORMATION
  Report Type: Spontaneous
  Country: FR (occurrence: FR)
  Receive Date: 20140523
  Receipt Date: 20140523
  Transmission Date: 20141212
  Serious: Yes (Life-Threatening)
  Sender: FDA-Public Use
  Company Number: FR-SA-2014SA065137

PATIENT
  Age: 92 Year
  Sex: Female

DRUGS (15)
  1. PARACETAMOL [Suspect]
     Indication: PRODUCT USED FOR UNKNOWN INDICATION
     Route: 065
  2. LOVENOX [Suspect]
     Indication: PRODUCT USED FOR UNKNOWN INDICATION
     Route: 042
     Dates: start: 20140110, end: 20140414
  3. PREVISCAN [Suspect]
     Indication: PRODUCT USED FOR UNKNOWN INDICATION
     Route: 048
     Dates: start: 20140110, end: 20140414
  4. CARDENSIEL [Concomitant]
  5. ALPRAZOLAM [Concomitant]
  6. FOLIC ACID [Concomitant]
  7. CETIRIZINE [Concomitant]
  8. MIANSERINE [Concomitant]
  9. TARDYFERON [Concomitant]
  10. LASILIX [Concomitant]
  11. HALDOL [Concomitant]
  12. DIFFU K [Concomitant]
  13. NOZINAN [Concomitant]
  14. OXYNORMORO [Concomitant]
  15. PULMICORT [Concomitant]

REACTIONS (4)
  - Shock haemorrhagic [Recovered/Resolved]
  - Melaena [Recovered/Resolved]
  - International normalised ratio increased [Recovered/Resolved]
  - Drug interaction [Recovered/Resolved]
